FAERS Safety Report 9039511 (Version 1)
Quarter: 2013Q1

REPORT INFORMATION
  Report Type: Spontaneous
  Country: US (occurrence: None)
  Receive Date: 20130123
  Receipt Date: 20130123
  Transmission Date: 20140127
  Serious: Yes (Death)
  Sender: FDA-Public Use
  Company Number: None

PATIENT
  Age: 70 Year
  Sex: Female

DRUGS (7)
  1. LETAIRIS [Suspect]
     Indication: PULMONARY ARTERIAL HYPERTENSION
     Route: 048
     Dates: start: 200906, end: 201303
  2. TREPROSTINIL [Concomitant]
  3. VIAGRA [Concomitant]
  4. WELLBUTRIN ER [Concomitant]
  5. ZOCOR [Concomitant]
  6. LASIX [Concomitant]
  7. ROBAXIN [Concomitant]

REACTIONS (1)
  - Death [None]
